FAERS Safety Report 7549654-1 (Version None)
Quarter: 2011Q2

REPORT INFORMATION
  Report Type: 
  Country: None (occurrence: None)
  Receive Date: 20110608
  Receipt Date: 20110526
  Transmission Date: 20111010
  Serious: Yes (Hospitalization)
  Sender: FDA-Public Use
  Company Number: 2011SP024670

PATIENT

DRUGS (3)
  1. RIBAVIRIN [Suspect]
     Indication: HEPATITIS C
  2. BOCEPREVIR (SCH-503034) [Suspect]
     Indication: HEPATITIS C
  3. VIRAFERONPEG [Suspect]
     Indication: HEPATITIS C

REACTIONS (6)
  - CLOSTRIDIUM DIFFICILE COLITIS [None]
  - PANCYTOPENIA [None]
  - HYPERTHERMIA [None]
  - ASTHENIA [None]
  - ANAEMIA [None]
  - LUNG DISORDER [None]
